FAERS Safety Report 20048762 (Version 2)
Quarter: 2021Q4

REPORT INFORMATION
  Report Type: Spontaneous
  Country: JP (occurrence: JP)
  Receive Date: 20211109
  Receipt Date: 20211221
  Transmission Date: 20220304
  Serious: Yes (Hospitalization, Other)
  Sender: FDA-Public Use
  Company Number: JP-AMGEN-JPNSP2021172478

PATIENT
  Sex: Male

DRUGS (1)
  1. REPATHA [Suspect]
     Active Substance: EVOLOCUMAB
     Indication: Hypercholesterolaemia
     Dosage: 420 MILLIGRAM
     Route: 058
     Dates: start: 202103, end: 2021

REACTIONS (1)
  - Cancer surgery [Recovered/Resolved]
